FAERS Safety Report 7220790-2 (Version None)
Quarter: 2011Q1

REPORT INFORMATION
  Report Type: 
  Country: None (occurrence: None)
  Receive Date: 20110112
  Receipt Date: 20101231
  Transmission Date: 20110831
  Serious: Yes (Hospitalization)
  Sender: FDA-Public Use
  Company Number: US-BIOGENIDEC-2010BI029745

PATIENT
  Age: 50 Year
  Sex: Female

DRUGS (2)
  1. NEURONTIN [Concomitant]
     Indication: MUSCLE SPASMS
  2. TYSABRI [Suspect]
     Indication: MULTIPLE SCLEROSIS
     Route: 042
     Dates: start: 20100609

REACTIONS (11)
  - THROMBOSIS [None]
  - CHEST PAIN [None]
  - MUSCLE SPASMS [None]
  - FLATULENCE [None]
  - DRUG INTOLERANCE [None]
  - DIZZINESS [None]
  - JOINT SPRAIN [None]
  - HYPOTENSION [None]
  - PULMONARY EMBOLISM [None]
  - CHEST DISCOMFORT [None]
  - LOSS OF CONSCIOUSNESS [None]
